FAERS Safety Report 17774385 (Version 1)
Quarter: 2020Q2

REPORT INFORMATION
  Report Type: Spontaneous
  Country: FR (occurrence: FR)
  Receive Date: 20200513
  Receipt Date: 20200513
  Transmission Date: 20200714
  Serious: Yes (Life-Threatening)
  Sender: FDA-Public Use
  Company Number: NVSC2020FR128353

PATIENT
  Age: 23 Year
  Sex: Female
  Weight: 47 kg

DRUGS (3)
  1. TEGRETOL [Suspect]
     Active Substance: CARBAMAZEPINE
     Indication: POISONING DELIBERATE
     Dosage: 50 DF
     Route: 048
     Dates: start: 20200119, end: 20200119
  2. TRANXENE [Suspect]
     Active Substance: CLORAZEPATE DIPOTASSIUM
     Indication: POISONING DELIBERATE
     Dosage: 90 MG
     Route: 048
     Dates: start: 20200119, end: 20200119
  3. SERESTA [Suspect]
     Active Substance: OXAZEPAM
     Indication: POISONING DELIBERATE
     Dosage: 1 G
     Route: 048
     Dates: start: 20200119, end: 20200119

REACTIONS (6)
  - Cardio-respiratory arrest [Recovered/Resolved]
  - Respiratory depression [Recovered/Resolved]
  - Coma [Recovered/Resolved]
  - Cardiogenic shock [Recovered/Resolved]
  - Seizure [Recovered/Resolved]
  - Lactic acidosis [Recovered/Resolved]

NARRATIVE: CASE EVENT DATE: 20200119
